FAERS Safety Report 10278282 (Version 1)
Quarter: 2014Q3

REPORT INFORMATION
  Report Type: Spontaneous
  Country: US (occurrence: US)
  Receive Date: 20140704
  Receipt Date: 20140704
  Transmission Date: 20150326
  Serious: No
  Sender: FDA-Public Use
  Company Number: US-PFIZER INC-2014180041

PATIENT
  Sex: Male

DRUGS (3)
  1. ADVIL [Suspect]
     Active Substance: IBUPROFEN
     Indication: HEADACHE
     Dosage: UNK
     Dates: start: 20140626, end: 20140626
  2. ADVIL [Suspect]
     Active Substance: IBUPROFEN
     Indication: TOOTHACHE
  3. ADVIL [Suspect]
     Active Substance: IBUPROFEN
     Indication: BACK PAIN

REACTIONS (2)
  - Drug ineffective [Unknown]
  - Musculoskeletal pain [Unknown]

NARRATIVE: CASE EVENT DATE: 20140626
